FAERS Safety Report 9342300 (Version 1)
Quarter: 2013Q2

REPORT INFORMATION
  Report Type: Report from Study
  Country: US (occurrence: US)
  Receive Date: 20130611
  Receipt Date: 20130611
  Transmission Date: 20140414
  Serious: Yes (Other)
  Sender: FDA-Public Use
  Company Number: PHEH2013US012222

PATIENT
  Age: 49 Year
  Sex: Female
  Weight: 64 kg

DRUGS (1)
  1. AFINITOR [Suspect]
     Indication: BREAST CANCER
     Dosage: 10 MG, DAILY
     Route: 048
     Dates: start: 20130524, end: 20130604

REACTIONS (4)
  - Blister [Not Recovered/Not Resolved]
  - Oral discomfort [Not Recovered/Not Resolved]
  - Aphagia [Not Recovered/Not Resolved]
  - Mouth ulceration [Not Recovered/Not Resolved]
